FAERS Safety Report 6410685-6 (Version None)
Quarter: 2009Q4

REPORT INFORMATION
  Report Type: 
  Country: None (occurrence: None)
  Receive Date: 20091016
  Receipt Date: 20091008
  Transmission Date: 20100525
  Serious: Yes (Hospitalization)
  Sender: FDA-Public Use
  Company Number: 88845

PATIENT
  Age: 50 Year
  Sex: Male

DRUGS (1)
  1. CISPLATIN [Suspect]
     Indication: SQUAMOUS CELL CARCINOMA
     Dosage: 150MG
     Dates: start: 20090831

REACTIONS (2)
  - BODY TEMPERATURE INCREASED [None]
  - HYPERTENSION [None]
